FAERS Safety Report 4530464-4 (Version None)
Quarter: 2004Q4

REPORT INFORMATION
  Report Type: 
  Country: None (occurrence: None)
  Receive Date: 20041215
  Receipt Date: 20041130
  Transmission Date: 20050328
  Serious: Yes (Death, Other)
  Sender: FDA-Public Use
  Company Number: 2004105307

PATIENT
  Age: 36 Year
  Sex: Female
  Weight: 52.61 kg

DRUGS (14)
  1. DELTASONE [Suspect]
     Indication: ILL-DEFINED DISORDER
     Dosage: 5 MG QD
  2. TRACLEER [Suspect]
     Indication: PULMONARY HYPERTENSION
     Dosage: 62.5 MG BID
     Dates: start: 20020322, end: 20020410
  3. TYLENOL [Suspect]
     Indication: ILL-DEFINED DISORDER
     Dosage: 325 MG QD
  4. MYCOPHENOLATE MOFETIL (MYCOPHENOLATE MOFETIL) [Suspect]
     Indication: ILL-DEFINED DISORDER
     Dosage: 500 MG BID
     Dates: start: 20030101
  5. CALCIUM (CALCIUM CARBONATE0 [Concomitant]
  6. PREVACID [Concomitant]
  7. MULTIVITAMIN [Concomitant]
  8. NIFEDIPINE [Concomitant]
  9. COUMADIN [Concomitant]
  10. VIOXX [Concomitant]
  11. IBUPROFEN [Concomitant]
  12. PREDNISONE [Concomitant]
  13. WARFARIN (WARFARIN) [Concomitant]
  14. TOPROL-XL [Concomitant]

REACTIONS (11)
  - ABDOMINAL MASS [None]
  - ALANINE AMINOTRANSFERASE INCREASED [None]
  - ASPARTATE AMINOTRANSFERASE INCREASED [None]
  - BLOOD BILIRUBIN INCREASED [None]
  - CARDIAC ARREST [None]
  - CHEST PAIN [None]
  - DISEASE PROGRESSION [None]
  - DIZZINESS [None]
  - GROIN INFECTION [None]
  - PULMONARY HYPERTENSION [None]
  - RESPIRATORY DISTRESS [None]
